FAERS Safety Report 4744560-X (Version None)
Quarter: 2005Q3

REPORT INFORMATION
  Report Type: 
  Country: None (occurrence: None)
  Receive Date: 20050812
  Receipt Date: 20050601
  Transmission Date: 20060218
  Serious: Yes (Hospitalization, Other)
  Sender: FDA-Public Use
  Company Number: IT-ABBOTT-05P-083-0302125-00

PATIENT
  Sex: Female
  Weight: 57 kg

DRUGS (11)
  1. HUMIRA [Suspect]
     Indication: RHEUMATOID ARTHRITIS
     Dosage: 40 MG
     Route: 058
     Dates: start: 20041220, end: 20050103
  2. TAUXID [Concomitant]
     Indication: RHEUMATOID ARTHRITIS
     Dates: start: 20041215
  3. BISOPROLOL FUMARATE [Concomitant]
     Indication: HYPERTENSION
     Dates: start: 20030222
  4. DROP STAR TG [Concomitant]
     Indication: XEROPHTHALMIA
     Dates: start: 20010101
  5. BROMAZEPAM [Concomitant]
     Indication: SLEEP DISORDER
     Dates: start: 20030226
  6. PARACETAMOL [Concomitant]
     Indication: RHEUMATOID ARTHRITIS
     Dates: start: 20050118
  7. PARCET [Concomitant]
     Indication: PROPHYLAXIS AGAINST GASTROINTESTINAL ULCER
     Dates: start: 20050305, end: 20050325
  8. PARCET [Concomitant]
     Dates: start: 20050430
  9. HEPARIN-FRACTION, SODIUM SALT [Concomitant]
     Indication: THROMBOSIS PROPHYLAXIS
     Dates: start: 20050305, end: 20050325
  10. LOPERAMIDE HYDROCHLORIDE [Concomitant]
     Indication: DIARRHOEA
     Dates: start: 20050306
  11. COMMERCIAL HUMIRA [Concomitant]
     Indication: RHEUMATOID ARTHRITIS
     Dates: start: 20040913

REACTIONS (2)
  - LYMPHADENOPATHY MEDIASTINAL [None]
  - RECTAL CANCER STAGE III [None]
